FAERS Safety Report 7072411-X (Version None)
Quarter: 2010Q4

REPORT INFORMATION
  Report Type: 
  Country: None (occurrence: None)
  Receive Date: 20101029
  Receipt Date: 20100122
  Transmission Date: 20110411
  Serious: No
  Sender: FDA-Public Use
  Company Number: A0841023A

PATIENT
  Age: 53 Year
  Sex: Male

DRUGS (8)
  1. ADVAIR DISKUS 100/50 [Suspect]
     Indication: BRONCHITIS
     Dosage: 1PUFF TWICE PER DAY
     Route: 055
     Dates: start: 20091101
  2. PROVENTIL [Concomitant]
     Dates: start: 20090918
  3. NASONEX [Concomitant]
  4. VICODIN [Concomitant]
  5. CLONAZEPAM [Concomitant]
  6. PREVACID [Concomitant]
  7. SAPHRIS [Concomitant]
  8. FLEXERIL [Concomitant]

REACTIONS (2)
  - DRUG INEFFECTIVE [None]
  - INHALATION THERAPY [None]
